FAERS Safety Report 6760405-0 (Version None)
Quarter: 2010Q2

REPORT INFORMATION
  Report Type: 
  Country: None (occurrence: None)
  Receive Date: 20100604
  Receipt Date: 20100527
  Transmission Date: 20101027
  Serious: Yes (Hospitalization)
  Sender: FDA-Public Use
  Company Number: 1000014192

PATIENT
  Age: 77 Year
  Sex: Male

DRUGS (7)
  1. MEMANTINE HCL [Suspect]
     Indication: DEMENTIA ALZHEIMER'S TYPE
     Dosage: 10 MG (10 MG, 1 IN 1 D), ORAL
     Route: 048
     Dates: start: 20081209, end: 20100503
  2. ARICEPT [Suspect]
     Indication: DEMENTIA ALZHEIMER'S TYPE
     Dosage: 10 MG (10 MG, 1 IN 1 D),ORAL; BEFORE 2008
     Route: 048
     Dates: start: 20080101
  3. CORGARD [Suspect]
     Indication: HYPERTENSION
     Dosage: 80 MG (80 MG, 1 IN 1	D), ORAL
     Route: 048
     Dates: start: 20100429
  4. ALPRAZOLAM [Suspect]
     Indication: ABNORMAL BEHAVIOUR
     Dosage: (0.25 MG),ORAL
     Route: 048
     Dates: start: 20100414, end: 20100429
  5. HALDOL [Suspect]
     Indication: ABNORMAL BEHAVIOUR
     Dosage: 20 GTT (10 GTT, 2 IN 1 D), ORAL
     Route: 048
     Dates: start: 20100414, end: 20100429
  6. KARDEGIC [Suspect]
     Indication: ISCHAEMIC HEART DISEASE PROPHYLAXIS
     Dosage: 1 DOSAGE FORMS (1 DOSAGE FORMS, 1 IN 1 D), ORAL
     Route: 048
     Dates: end: 20100429
  7. EQUANIL [Concomitant]

REACTIONS (5)
  - AGGRESSION [None]
  - LYMPHOPENIA [None]
  - MEAN CELL VOLUME INCREASED [None]
  - NEUTROPENIA [None]
  - THROMBOCYTOPENIA [None]
